FAERS Safety Report 25583619 (Version 2)
Quarter: 2025Q3

REPORT INFORMATION
  Report Type: Spontaneous
  Country: US (occurrence: US)
  Receive Date: 20250721
  Receipt Date: 20250731
  Transmission Date: 20251020
  Serious: No
  Sender: ROCHE
  Company Number: US-ROCHE-10000341049

PATIENT
  Sex: Female

DRUGS (4)
  1. XOLAIR PFS [Suspect]
     Active Substance: OMALIZUMAB
     Indication: Urticaria
     Route: 058
     Dates: start: 202504
  2. XOLAIR PFS [Suspect]
     Active Substance: OMALIZUMAB
  3. RITUXAN [Concomitant]
     Active Substance: RITUXIMAB
     Dosage: 500MG/50ML, INFUSED EVERY 6 MONTHS
  4. GEMACCORD [Concomitant]

REACTIONS (2)
  - No adverse event [Unknown]
  - Drug ineffective [Unknown]
